FAERS Safety Report 8124570-5 (Version None)
Quarter: 2012Q1

REPORT INFORMATION
  Report Type: 
  Country: None (occurrence: None)
  Receive Date: 20120209
  Receipt Date: 20120127
  Transmission Date: 20120608
  Serious: Yes (Other)
  Sender: FDA-Public Use
  Company Number: US-BAYER-2012-011233

PATIENT
  Age: 55 Year
  Sex: Female

DRUGS (14)
  1. TRASYLOL [Suspect]
     Indication: MITRAL VALVE REPAIR
     Dosage: HIGH DOSE APROTININ WAS USED PER OPERATIVE REPORT
     Route: 042
     Dates: start: 20070525
  2. METFORMIN HCL [Concomitant]
     Dosage: 500 MG, ONCE
  3. TRASYLOL [Suspect]
     Indication: CORONARY ARTERY BYPASS
  4. COREG [Concomitant]
     Dosage: 6.25 MG, BID
  5. EPINEPHRINE [Concomitant]
  6. LIPITOR [Concomitant]
     Dosage: 40 MG EACH NIGHT
  7. PROTAMINE SULFATE [Concomitant]
  8. ZESTRIL [Concomitant]
     Dosage: 5 MG, ONCE
  9. CARDIOPLEGIA [Concomitant]
     Dosage: 3800 ML, UNK
  10. LASIX [Concomitant]
     Dosage: 40 MG DAILY
  11. ACETYLSALICYLIC ACID SRT [Concomitant]
     Dosage: 81 MG DAILY
  12. DOPAMINE HCL [Concomitant]
  13. ALDACTONE [Concomitant]
     Dosage: 12.5 MG DAILY
  14. MILRINONE [Concomitant]

REACTIONS (1)
  - CARDIAC FAILURE [None]
